FAERS Safety Report 19439192 (Version 3)
Quarter: 2021Q3

REPORT INFORMATION
  Report Type: Report from Study
  Country: US (occurrence: US)
  Receive Date: 20210619
  Receipt Date: 20210714
  Transmission Date: 20211014
  Serious: No
  Sender: FDA-Public Use
  Company Number: NVSC2021US125386

PATIENT
  Sex: Male

DRUGS (1)
  1. ENTRESTO [Suspect]
     Active Substance: SACUBITRIL\VALSARTAN
     Indication: PRODUCT USED FOR UNKNOWN INDICATION
     Dosage: 24.26 MG, BID
     Route: 048
     Dates: start: 202105

REACTIONS (3)
  - Skin discolouration [Recovering/Resolving]
  - Fatigue [Unknown]
  - Atrioventricular block [Unknown]
